FAERS Safety Report 9831787 (Version 1)
Quarter: 2014Q1

REPORT INFORMATION
  Report Type: Spontaneous
  Country: US (occurrence: US)
  Receive Date: 20140121
  Receipt Date: 20140121
  Transmission Date: 20141002
  Serious: No
  Sender: FDA-Public Use
  Company Number: US-PFIZER INC-2014013985

PATIENT
  Age: 58 Year
  Sex: Female
  Weight: 105 kg

DRUGS (6)
  1. IBUPROFEN [Suspect]
     Indication: ANTIINFLAMMATORY THERAPY
     Dosage: 800MG, TWO TIMES IN A DAY
     Dates: start: 20131001, end: 201310
  2. IBUPROFEN [Suspect]
     Indication: PAIN
  3. FUROSEMIDE [Concomitant]
     Indication: FLUID RETENTION
     Dosage: UNK
  4. NEXIUM [Concomitant]
     Indication: GASTROOESOPHAGEAL REFLUX DISEASE
     Dosage: UNK
  5. MOTRIN [Concomitant]
     Indication: ANTIINFLAMMATORY THERAPY
     Dosage: UNK, TWO TIMES A DAY
  6. MOTRIN [Concomitant]
     Indication: PAIN

REACTIONS (1)
  - Feeling abnormal [Unknown]
